FAERS Safety Report 7822711-8 (Version None)
Quarter: 2011Q4

REPORT INFORMATION
  Report Type: 
  Country: None (occurrence: None)
  Receive Date: 20111018
  Receipt Date: 20111003
  Transmission Date: 20120403
  Serious: Yes (Other)
  Sender: FDA-Public Use
  Company Number: IE-ARROW GEN-2011-16666

PATIENT
  Age: 57 Year
  Sex: Female

DRUGS (1)
  1. CABERGOLINE [Suspect]
     Indication: PROLACTINOMA
     Dosage: 0.5 MG BID
     Dates: start: 20020101

REACTIONS (2)
  - DISEASE RECURRENCE [None]
  - TACHYPHYLAXIS [None]
